FAERS Safety Report 6825633-4 (Version None)
Quarter: 2010Q3

REPORT INFORMATION
  Report Type: 
  Country: None (occurrence: None)
  Receive Date: 20100708
  Receipt Date: 20070407
  Transmission Date: 20110219
  Serious: No
  Sender: FDA-Public Use
  Company Number: US-PFIZER INC-2007002246

PATIENT
  Sex: Female
  Weight: 58.51 kg

DRUGS (4)
  1. VARENICLINE [Suspect]
     Indication: SMOKING CESSATION THERAPY
     Dates: start: 20061215
  2. MESALAZINE [Concomitant]
  3. PREMARIN [Concomitant]
  4. UNITHROID [Concomitant]

REACTIONS (3)
  - HYPOPHAGIA [None]
  - NAUSEA [None]
  - RASH [None]
